FAERS Safety Report 13635742 (Version 1)
Quarter: 2017Q2

REPORT INFORMATION
  Report Type: Spontaneous
  Country: US (occurrence: US)
  Receive Date: 20170531
  Receipt Date: 20170531
  Transmission Date: 20170830
  Serious: No
  Sender: FDA-Public Use
  Company Number: US-ASTELLAS-1745317

PATIENT
  Sex: Female

DRUGS (11)
  1. FAMOTIDINE. [Concomitant]
     Active Substance: FAMOTIDINE
  2. REMERON [Concomitant]
     Active Substance: MIRTAZAPINE
  3. CARAFATE [Concomitant]
     Active Substance: SUCRALFATE
  4. DRONABINOL. [Concomitant]
     Active Substance: DRONABINOL
  5. DULCOLAX NOS [Concomitant]
     Active Substance: BISACODYL OR DOCUSATE SODIUM
  6. TYLENOL CHEST CONGESTION [Concomitant]
  7. OXYCODONE HYDROCHLORIDE. [Concomitant]
     Active Substance: OXYCODONE HYDROCHLORIDE
  8. FENTANYL. [Concomitant]
     Active Substance: FENTANYL
  9. ZOFRAN [Concomitant]
     Active Substance: ONDANSETRON HYDROCHLORIDE
  10. ENULOSE [Concomitant]
     Active Substance: LACTULOSE
  11. TARCEVA [Suspect]
     Active Substance: ERLOTINIB HYDROCHLORIDE
     Indication: PANCREATIC CARCINOMA
     Route: 048
     Dates: start: 20160218

REACTIONS (3)
  - Disease progression [Unknown]
  - Drug ineffective [Unknown]
  - Confusional state [Unknown]
